FAERS Safety Report 7229662-0 (Version None)
Quarter: 2011Q1

REPORT INFORMATION
  Report Type: 
  Country: None (occurrence: None)
  Receive Date: 20110117
  Receipt Date: 20110106
  Transmission Date: 20110831
  Serious: Yes (Hospitalization)
  Sender: FDA-Public Use
  Company Number: PHHY2011FR01097

PATIENT
  Sex: Female

DRUGS (5)
  1. DIGOXINE [Concomitant]
  2. DAFALGAN [Concomitant]
  3. EXELON [Suspect]
     Indication: DEMENTIA ALZHEIMER'S TYPE
     Dosage: 4.6 MG/ 24 HRS
     Route: 062
     Dates: start: 20101112, end: 20101116
  4. FORLAX [Concomitant]
  5. PREVISCAN [Concomitant]

REACTIONS (5)
  - AGITATION [None]
  - RESTLESSNESS [None]
  - DISORIENTATION [None]
  - HALLUCINATION [None]
  - CONFUSIONAL STATE [None]
